FAERS Safety Report 8564630-8 (Version None)
Quarter: 2012Q3

REPORT INFORMATION
  Report Type: 
  Country: None (occurrence: None)
  Receive Date: 20120803
  Receipt Date: 20120725
  Transmission Date: 20120928
  Serious: Yes (Death, Hospitalization)
  Sender: FDA-Public Use
  Company Number: GB-CELGENEUS-167-21880-12063743

PATIENT
  Age: 74 Year
  Sex: Female

DRUGS (8)
  1. DEXAMETHASONE [Suspect]
     Route: 048
     Dates: end: 20120709
  2. REVLIMID [Suspect]
     Route: 048
     Dates: end: 20120718
  3. REVLIMID [Suspect]
     Route: 048
     Dates: start: 20120601, end: 20120621
  4. DEXAMETHASONE [Suspect]
     Route: 048
     Dates: start: 20120601, end: 20120604
  5. CYCLOPHOSPHAMIDE [Suspect]
     Route: 048
     Dates: start: 20120601, end: 20120608
  6. ALLOPURINOL [Concomitant]
     Route: 065
  7. WHOLE BLOOD [Concomitant]
     Route: 065
  8. CYCLOPHOSPHAMIDE [Suspect]
     Route: 048
     Dates: end: 20120713

REACTIONS (3)
  - PNEUMONIA [None]
  - NEUTROPENIC SEPSIS [None]
  - DRUG ERUPTION [None]
